FAERS Safety Report 9061917 (Version 1)
Quarter: 2013Q1

REPORT INFORMATION
  Report Type: Spontaneous
  Country: US (occurrence: None)
  Receive Date: 20130118
  Receipt Date: 20130118
  Transmission Date: 20140127
  Serious: Yes (Death)
  Sender: FDA-Public Use
  Company Number: 2013PI000397

PATIENT
  Age: 51 Year
  Sex: Female

DRUGS (3)
  1. BUTALBITAL, ACETAMINOPHEN + CAFFEINE [Suspect]
     Indication: COMPLETED SUICIDE
     Route: 048
  2. INSULIN [Suspect]
     Route: 048
  3. UNSPECIFIED [Suspect]
     Route: 048

REACTIONS (1)
  - Completed suicide [None]
